FAERS Safety Report 8452295-5 (Version None)
Quarter: 2012Q2

REPORT INFORMATION
  Report Type: 
  Country: None (occurrence: None)
  Receive Date: 20120620
  Receipt Date: 20120613
  Transmission Date: 20120825
  Serious: Yes (Other)
  Sender: FDA-Public Use
  Company Number: ES-ELI_LILLY_AND_COMPANY-ES201206004123

PATIENT
  Sex: Female
  Weight: 77 kg

DRUGS (10)
  1. ALLOPURINOL [Concomitant]
     Indication: BLOOD URIC ACID
     Dosage: 100 MG, QD
     Route: 048
  2. BISOPROLOL FUMARATE [Concomitant]
     Indication: CARDIAC DISORDER
     Dosage: 2.5 MG, QD
     Route: 048
  3. ALDACTONE [Concomitant]
     Indication: HYPERTENSION
     Dosage: 25 MG, QD
     Route: 048
  4. OMEPRAZOLE [Concomitant]
     Indication: GASTRIC DISORDER
     Dosage: 20 MG, QD
     Route: 048
  5. ACETAMINOPHEN [Concomitant]
     Indication: PAIN
     Dosage: 1 G, QD
     Route: 048
  6. MINITRAN                           /00003201/ [Concomitant]
     Indication: CARDIAC DISORDER
     Dosage: 5 MG, QD
  7. RESINCALCIO [Concomitant]
     Indication: OSTEOPOROSIS
     Dosage: 15 G, QD
     Route: 048
  8. FORTEO [Suspect]
     Indication: OSTEOPOROSIS
     Dosage: 20 UG, QD
     Route: 058
     Dates: start: 20120531
  9. ATORVASTATIN CALCIUM [Concomitant]
     Indication: BLOOD CHOLESTEROL INCREASED
     Dosage: 40 MG, QD
     Route: 048
  10. SINTROM [Concomitant]
     Indication: CARDIAC DISORDER
     Dosage: 4 MG, PRN
     Route: 048

REACTIONS (2)
  - INTERNATIONAL NORMALISED RATIO INCREASED [None]
  - THROMBOSIS [None]
